FAERS Safety Report 12157823 (Version 1)
Quarter: 2016Q1

REPORT INFORMATION
  Report Type: Spontaneous
  Country: FR (occurrence: FR)
  Receive Date: 20160308
  Receipt Date: 20160308
  Transmission Date: 20160526
  Serious: Yes (Other)
  Sender: FDA-Public Use
  Company Number: FR-ASTRAZENECA-2016SE02487

PATIENT
  Sex: Female

DRUGS (2)
  1. NOLVADEX [Concomitant]
     Active Substance: TAMOXIFEN CITRATE
  2. IRESSA [Suspect]
     Active Substance: GEFITINIB
     Indication: NON-SMALL CELL LUNG CANCER
     Route: 048
     Dates: start: 201307, end: 201402

REACTIONS (1)
  - Disease progression [Unknown]
